FAERS Safety Report 4900863-7 (Version None)
Quarter: 2006Q1

REPORT INFORMATION
  Report Type: 
  Country: None (occurrence: None)
  Receive Date: 20060113
  Receipt Date: 20051201
  Transmission Date: 20060701
  Serious: No
  Sender: FDA-Public Use
  Company Number: 2005SP004232

PATIENT
  Age: 58 Year
  Sex: Female
  Weight: 52.1637 kg

DRUGS (5)
  1. LUNESTA [Suspect]
     Indication: INSOMNIA
     Dosage: 3 MG; ORAL
     Route: 048
     Dates: start: 20050501, end: 20051101
  2. ATACAND [Concomitant]
  3. TOPAMAX [Concomitant]
  4. ZANAFLEX [Concomitant]
  5. ESTROGENS CONJUGATED [Concomitant]

REACTIONS (4)
  - DEPRESSION [None]
  - DRUG EFFECT DECREASED [None]
  - HEADACHE [None]
  - VULVOVAGINAL DRYNESS [None]
